FAERS Safety Report 10462643 (Version 1)
Quarter: 2014Q3

REPORT INFORMATION
  Report Type: Spontaneous
  Country: FR (occurrence: FR)
  Receive Date: 20140918
  Receipt Date: 20140918
  Transmission Date: 20150326
  Serious: Yes (Hospitalization)
  Sender: FDA-Public Use
  Company Number: FR-ASTRAZENECA-2014SE69336

PATIENT
  Age: 22354 Day
  Sex: Male

DRUGS (10)
  1. HYTACAND [Suspect]
     Active Substance: CANDESARTAN CILEXETIL\HYDROCHLOROTHIAZIDE
     Dosage: 8 MG / 12.5 MG, 0.5 DF DAILY
     Route: 048
     Dates: end: 20140415
  2. AMOXICILLIN PANPHARMA (NON AZ) [Suspect]
     Active Substance: AMOXICILLIN
     Indication: BRONCHITIS
     Route: 042
     Dates: start: 20140328, end: 20140415
  3. IZILOX [Concomitant]
     Active Substance: MOXIFLOXACIN HYDROCHLORIDE
     Route: 048
     Dates: start: 20140412
  4. PIRILENE [Concomitant]
     Active Substance: PYRAZINAMIDE
     Route: 048
     Dates: start: 20140412
  5. ETHAMBUTOL [Concomitant]
     Active Substance: ETHAMBUTOL HYDROCHLORIDE
     Route: 048
     Dates: start: 20140412
  6. AMOXICILLIN PANPHARMA (NON AZ) [Suspect]
     Active Substance: AMOXICILLIN
     Indication: BRONCHITIS
     Dosage: AMOXICILLINE, 1 G BID
     Route: 065
     Dates: start: 20140227
  7. AMOXICILLIN PANPHARMA (NON AZ) [Suspect]
     Active Substance: AMOXICILLIN
     Indication: LISTERIOSIS
     Dosage: AMOXICILLINE, 1 G BID
     Route: 065
     Dates: start: 20140227
  8. RIFADINE(NON AZ ) [Suspect]
     Active Substance: RIFAMPIN
     Route: 042
     Dates: start: 20140412
  9. RIMIFON [Concomitant]
     Active Substance: ISONIAZID
     Route: 048
     Dates: start: 20140412
  10. AMOXICILLIN PANPHARMA (NON AZ) [Suspect]
     Active Substance: AMOXICILLIN
     Indication: LISTERIOSIS
     Route: 042
     Dates: start: 20140328, end: 20140415

REACTIONS (3)
  - Nephritis allergic [None]
  - Renal failure acute [Recovering/Resolving]
  - Nephropathy [None]

NARRATIVE: CASE EVENT DATE: 20140414
